FAERS Safety Report 20793280 (Version 2)
Quarter: 2022Q2

REPORT INFORMATION
  Report Type: Report from Study
  Country: US (occurrence: US)
  Receive Date: 20220506
  Receipt Date: 20220524
  Transmission Date: 20220721
  Serious: Yes (Other)
  Sender: FDA-Public Use
  Company Number: US-BRISTOL-MYERS SQUIBB COMPANY-2022-027755

PATIENT
  Age: 61 Year
  Sex: Male
  Weight: 108 kg

DRUGS (19)
  1. REVLIMID [Suspect]
     Active Substance: LENALIDOMIDE
     Indication: Plasma cell myeloma
     Route: 048
     Dates: start: 202109
  2. CYCLOBENZAPRINE [Concomitant]
     Active Substance: CYCLOBENZAPRINE
  3. TRIAMCINOLONE ACETONIDE [Concomitant]
     Active Substance: TRIAMCINOLONE ACETONIDE
  4. CALCIPOTRIENE AND BETAMETHASONE DIPROPIONATE [Concomitant]
     Active Substance: BETAMETHASONE DIPROPIONATE\CALCIPOTRIENE
  5. ERGOCALCIFEROL [Concomitant]
     Active Substance: ERGOCALCIFEROL
  6. ATORVASTATIN CALCIUM [Concomitant]
     Active Substance: ATORVASTATIN CALCIUM
  7. LOPERAMIDE [Concomitant]
     Active Substance: LOPERAMIDE
  8. LOSARTAN POTASSIUM [Concomitant]
     Active Substance: LOSARTAN POTASSIUM
  9. DOXEPIN [Concomitant]
     Active Substance: DOXEPIN
  10. LINZESS [Concomitant]
     Active Substance: LINACLOTIDE
  11. TRAZODONE [Concomitant]
     Active Substance: TRAZODONE HYDROCHLORIDE
  12. OXYCODONE [Concomitant]
     Active Substance: OXYCODONE
  13. AMLODIPINE BESYLATE [Concomitant]
     Active Substance: AMLODIPINE BESYLATE
  14. GABAPENTIN [Concomitant]
     Active Substance: GABAPENTIN
  15. DULOXETINE [Concomitant]
     Active Substance: DULOXETINE
  16. DEXAMETHASONE [Concomitant]
     Active Substance: DEXAMETHASONE
  17. OMEPRAZOLE [Concomitant]
     Active Substance: OMEPRAZOLE
  18. LIDOCAINE [Concomitant]
     Active Substance: LIDOCAINE
  19. METFORMIN HYDROCHLORIDE [Concomitant]
     Active Substance: METFORMIN HYDROCHLORIDE

REACTIONS (5)
  - Amnesia [Unknown]
  - Carpal tunnel syndrome [Unknown]
  - Diarrhoea [Unknown]
  - Weight decreased [Unknown]
  - Infection [Unknown]
